FAERS Safety Report 13879405 (Version 2)
Quarter: 2018Q3

REPORT INFORMATION
  Report Type: Spontaneous
  Country: US (occurrence: US)
  Receive Date: 20170817
  Receipt Date: 20180815
  Transmission Date: 20181010
  Serious: No
  Sender: FDA-Public Use
  Company Number: US-BAUSCH-BL-2017-019919

PATIENT

DRUGS (1)
  1. DORZOLAMIDE HYDROCHLORIDE OPHTHALMIC SOLUTION 2% [Suspect]
     Active Substance: DORZOLAMIDE HYDROCHLORIDE
     Indication: INTRAOCULAR PRESSURE DECREASED
     Route: 047

REACTIONS (1)
  - Drug ineffective [Unknown]
